FAERS Safety Report 10109155 (Version 1)
Quarter: 2014Q2

REPORT INFORMATION
  Report Type: Spontaneous
  Country: US (occurrence: None)
  Receive Date: 20140424
  Receipt Date: 20140424
  Transmission Date: 20141212
  Serious: No
  Sender: FDA-Public Use
  Company Number: None

PATIENT
  Age: 82 Year
  Sex: Female
  Weight: 71.67 kg

DRUGS (16)
  1. LEVOFLOXACIN 500 MG [Suspect]
     Dosage: 500 MG, 1 A DAY, BY MOUTH
     Route: 048
  2. INHALER-NEBILIZER [Concomitant]
  3. LOPRESSOR [Concomitant]
  4. HYDRALAZINE [Concomitant]
  5. NORVASC [Concomitant]
  6. COZARRO [Concomitant]
  7. THYROID [Concomitant]
  8. FOLIC ACID [Concomitant]
  9. VITAMIN E-200 [Concomitant]
  10. GARLIC [Concomitant]
  11. B-6 [Concomitant]
  12. ORTHO-TABS [Concomitant]
  13. FLATSEED [Concomitant]
  14. CRANBERRY [Concomitant]
  15. DULERA [Concomitant]
  16. MONELUKAST [Concomitant]

REACTIONS (2)
  - Fibroma [None]
  - Swelling [None]
